FAERS Safety Report 8299852-7 (Version None)
Quarter: 2012Q2

REPORT INFORMATION
  Report Type: 
  Country: None (occurrence: None)
  Receive Date: 20120419
  Receipt Date: 20120327
  Transmission Date: 20120825
  Serious: Yes (Hospitalization)
  Sender: FDA-Public Use
  Company Number: GB-BAXTER-2012BAX002071

PATIENT
  Age: 75 Year
  Sex: Female

DRUGS (3)
  1. DIANEAL PD4 GLUCOSE 1.36% W/V / 13.6 MG/ML [Suspect]
     Route: 033
     Dates: start: 20070521
  2. EXTRANEAL [Suspect]
     Route: 033
     Dates: start: 20070521
  3. NUTRINEAL PD4 WITH 1.1% AMINO ACIDS [Suspect]
     Route: 033
     Dates: start: 20070521

REACTIONS (1)
  - METRORRHAGIA [None]
